FAERS Safety Report 11707013 (Version 4)
Quarter: 2016Q2

REPORT INFORMATION
  Report Type: Spontaneous
  Country: US (occurrence: US)
  Receive Date: 20151106
  Receipt Date: 20160602
  Transmission Date: 20160815
  Serious: No
  Sender: FDA-Public Use
  Company Number: US-ACTELION PHARMACEUTICALS US, INC.-A-US2015-126831

PATIENT
  Age: 75 Year
  Sex: Female

DRUGS (21)
  1. DOXEPIN [Concomitant]
     Active Substance: DOXEPIN
  2. CRESTOR [Concomitant]
     Active Substance: ROSUVASTATIN CALCIUM
  3. VENTOLIN [Concomitant]
     Active Substance: ALBUTEROL SULFATE
  4. RECLAST [Concomitant]
     Active Substance: ZOLEDRONIC ACID
  5. ATENOLOL. [Concomitant]
     Active Substance: ATENOLOL
  6. VITAMIN D [Concomitant]
     Active Substance: CHOLECALCIFEROL
  7. LANTUS [Concomitant]
     Active Substance: INSULIN GLARGINE
  8. JANUVIA [Concomitant]
     Active Substance: SITAGLIPTIN PHOSPHATE
  9. FUROSEMIDE. [Concomitant]
     Active Substance: FUROSEMIDE
  10. OPSUMIT [Suspect]
     Active Substance: MACITENTAN
     Indication: PULMONARY ARTERIAL HYPERTENSION
     Dosage: 10 MG, QD
     Route: 048
     Dates: start: 20141002
  11. ALPRAZOLAM. [Concomitant]
     Active Substance: ALPRAZOLAM
  12. COUMADIN [Concomitant]
     Active Substance: WARFARIN SODIUM
  13. ACETAZOLAMIDE. [Concomitant]
     Active Substance: ACETAZOLAMIDE
  14. OXYGEN. [Concomitant]
     Active Substance: OXYGEN
  15. RIOCIGUAT [Concomitant]
     Active Substance: RIOCIGUAT
  16. BELVIQ [Concomitant]
     Active Substance: LORCASERIN HYDROCHLORIDE
  17. VOLTAREN [Concomitant]
     Active Substance: DICLOFENAC SODIUM
  18. SYNTHROID [Concomitant]
     Active Substance: LEVOTHYROXINE SODIUM
  19. OXYCONTIN [Concomitant]
     Active Substance: OXYCODONE HYDROCHLORIDE
  20. NASONEX [Concomitant]
     Active Substance: MOMETASONE FUROATE
  21. FLUOXETINE [Concomitant]
     Active Substance: FLUOXETINE HYDROCHLORIDE

REACTIONS (4)
  - Epistaxis [Recovered/Resolved]
  - Dysuria [Not Recovered/Not Resolved]
  - Dyspnoea [Unknown]
  - Swelling [Unknown]

NARRATIVE: CASE EVENT DATE: 201510
